FAERS Safety Report 8501569-8 (Version None)
Quarter: 2012Q3

REPORT INFORMATION
  Report Type: 
  Country: None (occurrence: None)
  Receive Date: 20120710
  Receipt Date: 20120625
  Transmission Date: 20120928
  Serious: Yes (Hospitalization)
  Sender: FDA-Public Use
  Company Number: US-ARROW-2012-11633

PATIENT
  Age: 50 Year
  Sex: Female

DRUGS (2)
  1. GABAPENTIN [Suspect]
     Dosage: 7500 MG, SINGLE
     Route: 065
  2. GABAPENTIN [Suspect]
     Indication: DRUG ABUSE
     Dosage: 24000 MG, SINGLE
     Route: 065

REACTIONS (5)
  - OVERDOSE [None]
  - DRUG ABUSE [None]
  - MOVEMENT DISORDER [None]
  - DEPRESSED LEVEL OF CONSCIOUSNESS [None]
  - POSTERIOR REVERSIBLE ENCEPHALOPATHY SYNDROME [None]
